FAERS Safety Report 8366903-0 (Version None)
Quarter: 2012Q1

REPORT INFORMATION
  Report Type: 
  Country: None (occurrence: None)
  Receive Date: 20120323
  Receipt Date: 20110615
  Transmission Date: 20120608
  Serious: Yes (Hospitalization, Other)
  Sender: FDA-Public Use
  Company Number: 163-21880-11040736

PATIENT
  Age: 81 Year
  Sex: Female
  Weight: 67.8581 kg

DRUGS (28)
  1. COUMADIN [Concomitant]
  2. FOLBEE (TRIOBE) (TABLETS) [Concomitant]
  3. ADVAIR HFA [Concomitant]
  4. BAYER ASPIRIN (ACETYLSALICYLIC ACID) (TABLETS) [Concomitant]
  5. PREDNISONE TAB [Concomitant]
  6. VELCADE [Concomitant]
  7. NORVASC [Concomitant]
  8. VASOTEC (ENALAPRIL MALEATE) (TABLETS) [Concomitant]
  9. ZOCOR [Concomitant]
  10. CALCIUM 500 + D 500MG (TABLETS) [Concomitant]
  11. FERROUS SULFATE (FERROUS SULFATE) (TABLETS) [Concomitant]
  12. VALTREX (VALACICLOVIR HYDROCHLORIDE) (TABLETS) [Concomitant]
  13. DEXAMETHASONE [Concomitant]
  14. B-COMPLEX (VITAMIN-B-KOMPLEX STANDARD) [Concomitant]
  15. IRON (IRON) [Concomitant]
  16. OMNICEF [Concomitant]
  17. VITAMIN D (ERGOCALCIFEROL) (CAPSULES) [Concomitant]
  18. ARANESP [Concomitant]
  19. MAGNESIUM (MAGNESIUM) [Concomitant]
  20. CALCIUM CARBONATE [Concomitant]
  21. TESSALON [Concomitant]
  22. HYDRALAZINE (HYDRALAZINE) (TABLETS) [Concomitant]
  23. LASIX [Concomitant]
  24. VITAMIN B12 (CYANOCOBALAMIN) (INJECTION) [Concomitant]
  25. REVLIMID [Suspect]
     Indication: MULTIPLE MYELOMA
     Dosage: 5 MG, 1 IN 1 D, PO
     Route: 048
     Dates: start: 20101008
  26. BYSTOLIC [Concomitant]
  27. COLACE (DOCUSATE SODIUM) (CAPSULES) [Concomitant]
  28. SLOW-MAG (MAGNESIUM CHLORIDE ANHYDROUS) (TABLETS) [Concomitant]

REACTIONS (2)
  - CHRONIC OBSTRUCTIVE PULMONARY DISEASE [None]
  - PNEUMONIA [None]
